FAERS Safety Report 4957832-0 (Version None)
Quarter: 2006Q1

REPORT INFORMATION
  Report Type: 
  Country: None (occurrence: None)
  Receive Date: 20060324
  Receipt Date: 20060310
  Transmission Date: 20060701
  Serious: Yes (Hospitalization)
  Sender: FDA-Public Use
  Company Number: 2006036086

PATIENT
  Age: 49 Year
  Sex: Female

DRUGS (6)
  1. DOXORUBICIN HCL [Suspect]
     Indication: ILL-DEFINED DISORDER
     Dosage: 50 MG (50 MG, 1 IN 1 CYCLICAL), INTRAVENOUS
     Route: 042
     Dates: start: 20060103, end: 20060103
  2. STREPTOZOCIN (STREPTOZOCIN) [Suspect]
     Indication: ILL-DEFINED DISORDER
     Dosage: 500 MG (1 IN 1 D), INTRAVENOUS
     Route: 042
     Dates: start: 20060103, end: 20060107
  3. ORACILLINE (PHENOXYMETHYLPENICILLIN) [Suspect]
     Indication: ILL-DEFINED DISORDER
     Dosage: 2000000 I.U. (1000000 I.U., 2 IN 1 D), ORAL
     Route: 048
     Dates: start: 20051201
  4. SOLU-MEDROL [Concomitant]
  5. ZOFRAN [Concomitant]
  6. LENOGRASTIM (LENOGRASTIM) [Concomitant]

REACTIONS (3)
  - EOSINOPHILIA [None]
  - LEUKOPENIA [None]
  - NEUTROPENIA [None]
